FAERS Safety Report 18998937 (Version 6)
Quarter: 2022Q1

REPORT INFORMATION
  Report Type: Report from Study
  Country: US (occurrence: US)
  Receive Date: 20210311
  Receipt Date: 20220209
  Transmission Date: 20220424
  Serious: Yes (Hospitalization)
  Sender: FDA-Public Use
  Company Number: US-TAKEDA-2021TUS015446

PATIENT
  Age: 8 Year
  Sex: Male

DRUGS (12)
  1. TEDUGLUTIDE [Suspect]
     Active Substance: TEDUGLUTIDE
     Indication: Short-bowel syndrome
     Dosage: 1.31 MILLIGRAM, QD
     Route: 058
     Dates: start: 20210209
  2. TEDUGLUTIDE [Suspect]
     Active Substance: TEDUGLUTIDE
     Indication: Short-bowel syndrome
     Dosage: 1.31 MILLIGRAM, QD
     Route: 058
     Dates: start: 20210209
  3. TEDUGLUTIDE [Suspect]
     Active Substance: TEDUGLUTIDE
     Indication: Short-bowel syndrome
     Dosage: 1.31 MILLIGRAM, QD
     Route: 058
     Dates: start: 20210209
  4. TEDUGLUTIDE [Suspect]
     Active Substance: TEDUGLUTIDE
     Indication: Short-bowel syndrome
     Dosage: 1.31 MILLIGRAM, QD
     Route: 058
     Dates: start: 20210209
  5. TEDUGLUTIDE [Suspect]
     Active Substance: TEDUGLUTIDE
     Dosage: 1.31 MILLIGRAM, QD
     Route: 058
     Dates: start: 20210210
  6. TEDUGLUTIDE [Suspect]
     Active Substance: TEDUGLUTIDE
     Dosage: 1.31 MILLIGRAM, QD
     Route: 058
     Dates: start: 20210210
  7. TEDUGLUTIDE [Suspect]
     Active Substance: TEDUGLUTIDE
     Dosage: 1.31 MILLIGRAM, QD
     Route: 058
     Dates: start: 20210210
  8. TEDUGLUTIDE [Suspect]
     Active Substance: TEDUGLUTIDE
     Dosage: 1.31 MILLIGRAM, QD
     Route: 058
     Dates: start: 20210210
  9. TEDUGLUTIDE [Suspect]
     Active Substance: TEDUGLUTIDE
     Dosage: 1.31 MILLIGRAM, QD
     Route: 058
     Dates: start: 20210902
  10. TEDUGLUTIDE [Suspect]
     Active Substance: TEDUGLUTIDE
     Dosage: 1.31 MILLIGRAM, QD
     Route: 058
     Dates: start: 20210902
  11. TEDUGLUTIDE [Suspect]
     Active Substance: TEDUGLUTIDE
     Dosage: 1.31 MILLIGRAM, QD
     Route: 058
     Dates: start: 20210902
  12. TEDUGLUTIDE [Suspect]
     Active Substance: TEDUGLUTIDE
     Dosage: 1.31 MILLIGRAM, QD
     Route: 058
     Dates: start: 20210902

REACTIONS (7)
  - Acidosis [Unknown]
  - COVID-19 [Unknown]
  - Pyrexia [Unknown]
  - Carbohydrate intolerance [Unknown]
  - Weight decreased [Recovered/Resolved]
  - Nasopharyngitis [Unknown]
  - Drug ineffective [Unknown]

NARRATIVE: CASE EVENT DATE: 20210216
